FAERS Safety Report 22164020 (Version 1)
Quarter: 2023Q2

REPORT INFORMATION
  Report Type: Spontaneous
  Country: RU (occurrence: RU)
  Receive Date: 20230402
  Receipt Date: 20230402
  Transmission Date: 20230722
  Serious: Yes (Other)
  Sender: FDA-Public Use
  Company Number: RU-002147023-NVSC2023RU064811

PATIENT
  Age: 5 Year
  Sex: Male

DRUGS (1)
  1. CYCLOSPORINE [Suspect]
     Active Substance: CYCLOSPORINE
     Indication: Dermatitis atopic
     Dosage: 2.5 MG/KG, UNKNOWN
     Route: 065

REACTIONS (4)
  - Pyoderma [Unknown]
  - Herpes virus infection [Unknown]
  - Drug ineffective [Unknown]
  - Product use issue [Unknown]
